FAERS Safety Report 5944270-7 (Version None)
Quarter: 2008Q4

REPORT INFORMATION
  Report Type: 
  Country: None (occurrence: None)
  Receive Date: 20081104
  Receipt Date: 20081020
  Transmission Date: 20090506
  Serious: Yes (Other)
  Sender: FDA-Public Use
  Company Number: MK-6035752

PATIENT
  Sex: Female

DRUGS (7)
  1. AZATHIOPRINE [Suspect]
     Indication: CYSTIC FIBROSIS
     Dosage: UNKNOWN;TRANPLACENTAL;UNKNOWN
     Route: 064
  2. AZATHIOPRINE [Suspect]
     Indication: HEART AND LUNG TRANSPLANT
     Dosage: UNKNOWN;TRANPLACENTAL;UNKNOWN
     Route: 064
  3. METHYLPREDNISOLONE 16MG TAB [Suspect]
     Indication: LOWER RESPIRATORY TRACT INFECTION
     Dosage: UNKNOWN;TRANSPLACENTAL;UNKNOWN
     Route: 064
  4. METHYLPREDNISOLONE 16MG TAB [Suspect]
     Indication: PSEUDOMONAS INFECTION
     Dosage: UNKNOWN;TRANSPLACENTAL;UNKNOWN
     Route: 064
  5. METHYLPREDNISOLONE 16MG TAB [Suspect]
     Indication: STAPHYLOCOCCAL INFECTION
     Dosage: UNKNOWN;TRANSPLACENTAL;UNKNOWN
     Route: 064
  6. CYCLOSPORINE [Suspect]
     Indication: CYSTIC FIBROSIS
     Dosage: UNKNOWN;TRANSPLACENTAL;UNKNOWN
     Route: 064
  7. CYCLOSPORINE [Suspect]
     Indication: HEART AND LUNG TRANSPLANT
     Dosage: UNKNOWN;TRANSPLACENTAL;UNKNOWN
     Route: 064

REACTIONS (3)
  - DRUG EXPOSURE DURING PREGNANCY [None]
  - PREMATURE BABY [None]
  - SMALL FOR DATES BABY [None]
